FAERS Safety Report 9721364 (Version 2)
Quarter: 2013Q4

REPORT INFORMATION
  Report Type: Spontaneous
  Country: US (occurrence: US)
  Receive Date: 20131129
  Receipt Date: 20131216
  Transmission Date: 20140711
  Serious: No
  Sender: FDA-Public Use
  Company Number: US-PFIZER INC-2013338098

PATIENT
  Sex: 0

DRUGS (2)
  1. NORVASC [Suspect]
     Dosage: UNK
  2. ALDACTONE [Suspect]
     Dosage: UNK

REACTIONS (1)
  - Hypertension [Unknown]
